FAERS Safety Report 5168933-9 (Version None)
Quarter: 2006Q4

REPORT INFORMATION
  Report Type: 
  Country: None (occurrence: None)
  Receive Date: 20061211
  Receipt Date: 20060814
  Transmission Date: 20070319
  Serious: Yes (Hospitalization, Other)
  Sender: FDA-Public Use
  Company Number: PHNU2006DE02787

PATIENT
  Age: 67 Year
  Sex: Female
  Weight: 73 kg

DRUGS (5)
  1. RADIOTHERAPY [Concomitant]
     Indication: METASTASES TO BONE
     Route: 065
     Dates: start: 20050101
  2. CYCLOPHOSPHAMIDE + EPIRUBICIN [Concomitant]
     Dosage: 4 CYCLES
     Route: 065
  3. CYCLOPHOSPHAMIDE + EPIRUBICIN [Concomitant]
     Dosage: 6 CYCLES
     Route: 065
     Dates: start: 20011101
  4. CYCLOPHOSPHAMIDE + 5-FU + METHOTREXATE [Concomitant]
     Dosage: 3 CYCLES
  5. ZOMETA [Suspect]
     Indication: METASTASES TO BONE
     Dosage: 4 MG, QMO
     Route: 042
     Dates: start: 20010101

REACTIONS (9)
  - BONE DEBRIDEMENT [None]
  - DENTAL CARIES [None]
  - DENTAL TREATMENT [None]
  - OSTEITIS [None]
  - OSTEONECROSIS [None]
  - OSTEOTOMY [None]
  - SKIN GRAFT [None]
  - TOOTH EXTRACTION [None]
  - TOOTHACHE [None]
